FAERS Safety Report 24937603 (Version 1)
Quarter: 2025Q1

REPORT INFORMATION
  Report Type: Spontaneous
  Country: CA (occurrence: CA)
  Receive Date: 20250206
  Receipt Date: 20250206
  Transmission Date: 20250408
  Serious: Yes (Other)
  Sender: B BRAUN
  Company Number: CA-B.Braun Medical Inc.-2170613

PATIENT
  Age: 71 Year
  Sex: Female

DRUGS (8)
  1. HEPARIN SODIUM IN DEXTROSE [Suspect]
     Active Substance: HEPARIN SODIUM
  2. HYDROCORTISONE [Suspect]
     Active Substance: HYDROCORTISONE
  3. SYMBICORT [Concomitant]
     Active Substance: BUDESONIDE\FORMOTEROL FUMARATE DIHYDRATE
  4. ALBUTEROL [Concomitant]
     Active Substance: ALBUTEROL
  5. RISPERIDONE [Concomitant]
     Active Substance: RISPERIDONE
  6. RISEDRONATE SODIUM [Concomitant]
     Active Substance: RISEDRONATE SODIUM
  7. LEVOTHYROXINE SODIUM [Concomitant]
     Active Substance: LEVOTHYROXINE SODIUM
  8. FLUVOXAMINE [Concomitant]
     Active Substance: FLUVOXAMINE

REACTIONS (4)
  - Arthralgia [Unknown]
  - Pain in extremity [Unknown]
  - Pain [Unknown]
  - Myalgia [Unknown]
